FAERS Safety Report 13352915 (Version 15)
Quarter: 2024Q1

REPORT INFORMATION
  Report Type: Report from Study
  Country: CA (occurrence: CA)
  Receive Date: 20170320
  Receipt Date: 20240302
  Transmission Date: 20240410
  Serious: Yes (Other)
  Sender: FDA-Public Use
  Company Number: PHHY2016CA104859

PATIENT
  Age: 59 Year
  Sex: Female

DRUGS (18)
  1. COSENTYX [Suspect]
     Active Substance: SECUKINUMAB
     Indication: Psoriatic arthropathy
     Dosage: 300 MG, QW
     Route: 058
     Dates: start: 20160724
  2. COSENTYX [Suspect]
     Active Substance: SECUKINUMAB
     Dosage: 450 MG, QMO
     Route: 058
     Dates: start: 20160724, end: 20160814
  3. COSENTYX [Suspect]
     Active Substance: SECUKINUMAB
     Dosage: 300 MG, QMO
     Route: 058
     Dates: start: 20160823
  4. COSENTYX [Suspect]
     Active Substance: SECUKINUMAB
     Dosage: 300 MG, QMO
     Route: 058
     Dates: start: 20161116
  5. COSENTYX [Suspect]
     Active Substance: SECUKINUMAB
     Dosage: 300 MG, QMO
     Route: 030
     Dates: start: 20161216
  6. COSENTYX [Suspect]
     Active Substance: SECUKINUMAB
     Dosage: 300 MG, QMO
     Route: 030
     Dates: start: 20170216
  7. COSENTYX [Suspect]
     Active Substance: SECUKINUMAB
     Dosage: 450 MG, QMO
     Route: 058
     Dates: start: 20190207
  8. COSENTYX [Suspect]
     Active Substance: SECUKINUMAB
     Dosage: 450 MG, QMO
     Route: 058
     Dates: start: 20190216
  9. COSENTYX [Suspect]
     Active Substance: SECUKINUMAB
     Dosage: 450 MG, QMO
     Route: 058
  10. COSENTYX [Suspect]
     Active Substance: SECUKINUMAB
     Dosage: 450 MG, QMO
     Route: 058
     Dates: start: 2019
  11. COSENTYX [Suspect]
     Active Substance: SECUKINUMAB
     Dosage: 300 MG, QMO
     Route: 058
  12. PIROXICAM [Concomitant]
     Active Substance: PIROXICAM
     Indication: Product used for unknown indication
     Dosage: 20 MG, QD
     Route: 065
  13. MORPHINE [Concomitant]
     Active Substance: MORPHINE
     Indication: Product used for unknown indication
     Dosage: 6 MG, BID
     Route: 058
  14. STATEX [Concomitant]
     Indication: Product used for unknown indication
     Dosage: 25 MG
     Route: 065
  15. PANTOPRAZOLE SODIUM [Concomitant]
     Active Substance: PANTOPRAZOLE SODIUM
     Indication: Product used for unknown indication
     Dosage: UNK
     Route: 065
  16. SIMPONI [Concomitant]
     Active Substance: GOLIMUMAB
     Indication: Product used for unknown indication
     Dosage: UNK
     Route: 065
  17. ENBREL [Concomitant]
     Active Substance: ETANERCEPT
     Indication: Product used for unknown indication
     Dosage: UNK
     Route: 065
  18. LYRICA [Concomitant]
     Active Substance: PREGABALIN
     Indication: Product used for unknown indication
     Dosage: UNK
     Route: 065

REACTIONS (37)
  - Thrombosis [Not Recovered/Not Resolved]
  - Limb discomfort [Unknown]
  - Swelling [Unknown]
  - Contusion [Unknown]
  - Psoriatic arthropathy [Unknown]
  - Pain [Not Recovered/Not Resolved]
  - Pain in extremity [Unknown]
  - Arthralgia [Not Recovered/Not Resolved]
  - Hypokinesia [Unknown]
  - Neck pain [Not Recovered/Not Resolved]
  - Hot flush [Unknown]
  - Fatigue [Unknown]
  - Eczema [Not Recovered/Not Resolved]
  - Night sweats [Unknown]
  - Dizziness [Unknown]
  - Somnolence [Unknown]
  - Bursitis [Unknown]
  - Injection site pain [Recovering/Resolving]
  - Feeling abnormal [Unknown]
  - Blood pressure increased [Unknown]
  - Heart rate irregular [Unknown]
  - Dry mouth [Unknown]
  - Headache [Unknown]
  - Rash [Unknown]
  - Psoriasis [Unknown]
  - Nasopharyngitis [Not Recovered/Not Resolved]
  - Nasal congestion [Not Recovered/Not Resolved]
  - Back pain [Unknown]
  - Musculoskeletal stiffness [Unknown]
  - Joint swelling [Unknown]
  - Discomfort [Unknown]
  - Gait disturbance [Unknown]
  - Device difficult to use [Unknown]
  - Inappropriate schedule of product administration [Unknown]
  - Incorrect route of product administration [Unknown]
  - Drug ineffective [Unknown]
  - Incorrect dose administered [Unknown]

NARRATIVE: CASE EVENT DATE: 20160101
